FAERS Safety Report 21711259 (Version 3)
Quarter: 2023Q1

REPORT INFORMATION
  Report Type: Spontaneous
  Country: US (occurrence: US)
  Receive Date: 20221212
  Receipt Date: 20230102
  Transmission Date: 20230418
  Serious: Yes (Life-Threatening, Hospitalization, Other)
  Sender: FDA-Public Use
  Company Number: US-MLMSERVICE-20221125-3942491-1

PATIENT
  Age: 31 Day
  Sex: Male

DRUGS (5)
  1. DEXAMETHASONE [Suspect]
     Active Substance: DEXAMETHASONE
     Indication: Product used for unknown indication
     Dosage: 0.05 MILLIGRAM/KILOGRAM(0.5 MG/KG/DOSE WAS ADMINISTERED FOLLOWED BY A DOSE OF 0.25 MG/KG 12 HOURS LA
     Route: 065
  2. DEXAMETHASONE [Suspect]
     Active Substance: DEXAMETHASONE
     Dosage: 0.05 MILLIGRAM/KILOGRAM PER DOSE (0.5 MG/KG/DOSE WAS ADMINISTERED FOLLOWED BY A DOSE OF 0.25 MG/KG 1
     Route: 065
  3. DEXAMETHASONE [Suspect]
     Active Substance: DEXAMETHASONE
     Dosage: 0.25 MILLIGRAM/KILOGRAM(DEXAMETHASONE 0.5 MG/KG/DOSE WAS ADMINISTERED FOLLOWED BY A DOSE OF 0.25 MG/
     Route: 065
  4. NAFCILLIN [Concomitant]
     Active Substance: NAFCILLIN SODIUM
     Indication: Evidence based treatment
     Dosage: UNK
     Route: 065
  5. GENTAMICIN [Concomitant]
     Active Substance: GENTAMICIN
     Indication: Evidence based treatment
     Dosage: UNK
     Route: 065

REACTIONS (4)
  - Cardiogenic shock [Recovered/Resolved]
  - Hypertrophic cardiomyopathy [Recovered/Resolved]
  - Hypertension [Recovered/Resolved]
  - Oliguria [Recovering/Resolving]
